FAERS Safety Report 8883144 (Version 2)
Quarter: 2012Q4

REPORT INFORMATION
  Report Type: 
  Country: JP (occurrence: JP)
  Receive Date: 20121104
  Receipt Date: 20121113
  Transmission Date: 20130627
  Serious: Yes (Death)
  Sender: FDA-Public Use
  Company Number: JP-JNJFOC-20121016787

PATIENT
  Age: 75 Year
  Sex: Female
  Weight: 52 kg

DRUGS (5)
  1. XARELTO [Suspect]
     Indication: PRODUCT USED FOR UNKNOWN INDICATION
     Route: 048
     Dates: start: 20120724, end: 20121022
  2. AMLODIN OD [Concomitant]
     Indication: HYPERTENSION
     Route: 048
     Dates: start: 200004
  3. ADETPHOS [Concomitant]
     Indication: DIZZINESS
     Route: 048
     Dates: start: 201202
  4. MERISLON [Concomitant]
     Indication: DIZZINESS
     Route: 048
     Dates: start: 201202
  5. GLYCERINE [Concomitant]
     Indication: CONSTIPATION
     Dates: start: 20120919

REACTIONS (1)
  - Gastrointestinal necrosis [Fatal]
